FAERS Safety Report 6813504-9 (Version None)
Quarter: 2010Q3

REPORT INFORMATION
  Report Type: 
  Country: None (occurrence: None)
  Receive Date: 20100701
  Receipt Date: 20100623
  Transmission Date: 20110219
  Serious: Yes (Hospitalization)
  Sender: FDA-Public Use
  Company Number: DE-ABBOTT-10P-062-0653164-00

PATIENT
  Age: 30 Year
  Sex: Male

DRUGS (21)
  1. ERGENYL [Suspect]
     Indication: PRODUCT USED FOR UNKNOWN INDICATION
     Route: 048
     Dates: start: 20070421, end: 20070421
  2. ERGENYL [Suspect]
     Route: 048
     Dates: start: 20070417, end: 20070417
  3. ERGENYL [Suspect]
     Route: 048
     Dates: start: 20070418, end: 20070418
  4. ERGENYL [Suspect]
     Route: 048
     Dates: start: 20070419, end: 20070419
  5. ERGENYL [Suspect]
     Route: 048
     Dates: start: 20070429, end: 20070503
  6. ERGENYL [Suspect]
     Route: 048
     Dates: start: 20070504
  7. PROMETHAZINE [Suspect]
     Indication: PRODUCT USED FOR UNKNOWN INDICATION
     Route: 048
     Dates: start: 20070412, end: 20070422
  8. PROMETHAZINE [Suspect]
     Route: 048
     Dates: start: 20061124, end: 20061127
  9. PROMETHAZINE [Suspect]
     Route: 048
     Dates: start: 20061128, end: 20070328
  10. PROMETHAZINE [Suspect]
     Route: 048
     Dates: start: 20070329, end: 20070411
  11. PROMETHAZINE [Suspect]
     Route: 048
     Dates: start: 20070423, end: 20070522
  12. PROMETHAZINE [Suspect]
     Route: 048
     Dates: start: 20070523
  13. HALDOL [Suspect]
     Indication: PRODUCT USED FOR UNKNOWN INDICATION
     Route: 048
     Dates: start: 20070327, end: 20070422
  14. HALDOL [Suspect]
     Route: 048
     Dates: start: 20061129, end: 20061224
  15. HALDOL [Suspect]
     Route: 048
     Dates: start: 20061225, end: 20070301
  16. HALDOL [Suspect]
     Route: 048
     Dates: start: 20070302, end: 20070426
  17. HALDOL [Suspect]
     Route: 048
     Dates: start: 20070424
  18. CLOZAPINE [Suspect]
     Indication: PRODUCT USED FOR UNKNOWN INDICATION
     Route: 048
     Dates: start: 20070218, end: 20070422
  19. CLOZAPINE [Suspect]
     Route: 048
     Dates: start: 20070109, end: 20070217
  20. CLOZAPINE [Suspect]
     Route: 048
     Dates: start: 20070423
  21. BUSCOPAN [Suspect]
     Indication: PRODUCT USED FOR UNKNOWN INDICATION
     Route: 048
     Dates: start: 20100412, end: 20100422

REACTIONS (9)
  - APHASIA [None]
  - ASTHENIA [None]
  - DYSPHEMIA [None]
  - GAIT DISTURBANCE [None]
  - MIOSIS [None]
  - SALIVARY HYPERSECRETION [None]
  - SEDATION [None]
  - SPEECH DISORDER [None]
  - VOMITING [None]
